FAERS Safety Report 24542434 (Version 1)
Quarter: 2024Q4

REPORT INFORMATION
  Report Type: Report from Study
  Country: BR (occurrence: BR)
  Receive Date: 20241024
  Receipt Date: 20241024
  Transmission Date: 20250115
  Serious: Yes (Other)
  Sender: ABBVIE
  Company Number: BR-ABBVIE-5960747

PATIENT
  Sex: Male
  Weight: 107 kg

DRUGS (2)
  1. SKYRIZI [Suspect]
     Active Substance: RISANKIZUMAB-RZAA
     Indication: Psoriasis
     Dosage: FORM STRENGTH-75 MG, WEEK 0, 2 SYRINGES
     Route: 058
     Dates: start: 20241016
  2. SKYRIZI [Suspect]
     Active Substance: RISANKIZUMAB-RZAA
     Dosage: FORM STRENGTH-75 MG
     Route: 058
     Dates: start: 20201230

REACTIONS (4)
  - Renal failure [Unknown]
  - Hypertension [Unknown]
  - Psoriasis [Not Recovered/Not Resolved]
  - Emotional distress [Recovering/Resolving]

NARRATIVE: CASE EVENT DATE: 20240101
